FAERS Safety Report 7546295-7 (Version None)
Quarter: 2011Q2

REPORT INFORMATION
  Report Type: 
  Country: None (occurrence: None)
  Receive Date: 20110614
  Receipt Date: 20040720
  Transmission Date: 20111010
  Serious: Yes (Other)
  Sender: FDA-Public Use
  Company Number: PHFR2004GB02610

PATIENT
  Sex: Male

DRUGS (1)
  1. CLOZAPINE [Suspect]
     Indication: SCHIZOPHRENIA
     Dates: start: 19951211

REACTIONS (4)
  - GASTROINTESTINAL HAEMORRHAGE [None]
  - MICROCYTIC ANAEMIA [None]
  - PLATELET COUNT INCREASED [None]
  - HAEMOGLOBIN DECREASED [None]
